FAERS Safety Report 21109819 (Version 1)
Quarter: 2022Q3

REPORT INFORMATION
  Report Type: Spontaneous
  Country: US (occurrence: US)
  Receive Date: 20220721
  Receipt Date: 20220721
  Transmission Date: 20221027
  Serious: No
  Sender: FDA-Public Use
  Company Number: US-LUPIN PHARMACEUTICALS INC.-2022-09610

PATIENT
  Age: 58 Year
  Sex: Female

DRUGS (2)
  1. CEVIMELINE [Interacting]
     Active Substance: CEVIMELINE
     Indication: Sjogren^s syndrome
     Dosage: 30 MG, TID, THREE TIMES A DAY
     Route: 065
  2. HYDROXYCHLOROQUINE [Concomitant]
     Active Substance: HYDROXYCHLOROQUINE
     Indication: Subacute cutaneous lupus erythematosus
     Dosage: 150 MG, QD
     Route: 065

REACTIONS (6)
  - Tachycardia [Recovered/Resolved]
  - Hyperhidrosis [Recovered/Resolved]
  - Malaise [Recovered/Resolved]
  - Nausea [Recovered/Resolved]
  - Rectal tenesmus [Recovered/Resolved]
  - Drug interaction [Unknown]
